FAERS Safety Report 12700473 (Version 1)
Quarter: 2016Q3

REPORT INFORMATION
  Report Type: Spontaneous
  Country: US (occurrence: US)
  Receive Date: 20160830
  Receipt Date: 20160830
  Transmission Date: 20161109
  Serious: No
  Sender: FDA-Public Use
  Company Number: US-SA-2016SA055707

PATIENT
  Age: 63 Year
  Sex: Male
  Weight: 83.91 kg

DRUGS (26)
  1. NORMAL SALINE [Concomitant]
     Active Substance: SODIUM CHLORIDE
     Dates: start: 20151123
  2. EPIPEN [Concomitant]
     Active Substance: EPINEPHRINE
     Indication: ANAPHYLACTIC REACTION
     Dates: start: 20151123
  3. FLUTICASONE PROPIONATE. [Concomitant]
     Active Substance: FLUTICASONE PROPIONATE
     Dates: start: 20150210
  4. PREDNISONE. [Concomitant]
     Active Substance: PREDNISONE
     Dates: start: 20140205
  5. LOVASTATIN. [Concomitant]
     Active Substance: LOVASTATIN
     Dates: start: 20050310
  6. TAZORAC [Concomitant]
     Active Substance: TAZAROTENE
     Dates: start: 20151110
  7. MYCOPHENOLATE MOFETIL. [Concomitant]
     Active Substance: MYCOPHENOLATE MOFETIL
     Dates: start: 20150210
  8. FAMOTIDINE. [Concomitant]
     Active Substance: FAMOTIDINE
     Dates: start: 20050310
  9. TAMSULOSIN HYDROCHLORIDE. [Concomitant]
     Active Substance: TAMSULOSIN HYDROCHLORIDE
     Dates: start: 20150210
  10. BACTRIM [Concomitant]
     Active Substance: SULFAMETHOXAZOLE\TRIMETHOPRIM
     Dates: start: 20100305
  11. VICODIN [Concomitant]
     Active Substance: ACETAMINOPHEN\HYDROCODONE BITARTRATE
     Dates: start: 20151208
  12. AMIODARONE [Concomitant]
     Active Substance: AMIODARONE
     Dates: start: 20151208
  13. VITAMIN D3 [Concomitant]
     Active Substance: CHOLECALCIFEROL
     Dosage: DOSE:2000 UNIT(S)
     Dates: start: 20150210
  14. NEORAL [Concomitant]
     Active Substance: CYCLOSPORINE
     Dates: start: 20050314
  15. TYLENOL [Concomitant]
     Active Substance: ACETAMINOPHEN
     Dates: start: 20151208
  16. DIPHENHYDRAMINE. [Concomitant]
     Active Substance: DIPHENHYDRAMINE
     Indication: ANAPHYLACTIC REACTION
     Dates: start: 20151123
  17. TEGRETOL [Concomitant]
     Active Substance: CARBAMAZEPINE
     Dates: start: 20140205
  18. FABRAZYME [Suspect]
     Active Substance: AGALSIDASE BETA
     Indication: FABRY^S DISEASE
     Route: 042
  19. VENTOLIN HFA [Concomitant]
     Active Substance: ALBUTEROL SULFATE
     Dosage: DOSE:2 PUFF(S)
     Dates: start: 20151124
  20. CITALOPRAM [Concomitant]
     Active Substance: CITALOPRAM HYDROBROMIDE
     Dates: start: 20150210
  21. FABRAZYME [Suspect]
     Active Substance: AGALSIDASE BETA
     Indication: FABRY^S DISEASE
     Route: 042
  22. COREG [Concomitant]
     Active Substance: CARVEDILOL
     Dates: start: 20151208
  23. WARFARIN [Concomitant]
     Active Substance: WARFARIN
     Dates: start: 20151208
  24. GABAPENTIN. [Concomitant]
     Active Substance: GABAPENTIN
     Dates: start: 20151208
  25. DEXAMETHASONE. [Concomitant]
     Active Substance: DEXAMETHASONE
     Indication: ANAPHYLACTIC REACTION
     Dosage: DOSE:4 MILLIGRAM(S)/MILLILITRE
     Dates: start: 20151123
  26. ACETAMINOPHEN W/HYDROCODONE [Concomitant]
     Active Substance: ACETAMINOPHEN\HYDROCODONE
     Dates: start: 20151110

REACTIONS (2)
  - Localised infection [Unknown]
  - Thermal burn [Unknown]
